FAERS Safety Report 6232786-8 (Version None)
Quarter: 2009Q2

REPORT INFORMATION
  Report Type: 
  Country: None (occurrence: None)
  Receive Date: 20090612
  Receipt Date: 20090612
  Transmission Date: 20091009
  Serious: No
  Sender: FDA-Public Use
  Company Number: None

PATIENT
  Sex: Female
  Weight: 63.9572 kg

DRUGS (2)
  1. KENALOG [Suspect]
     Indication: EXPOSURE TO TOXIC AGENT
     Dosage: UNKNOWN AT THIS TIME ONE INJECTION IM, ONE SHOT GIVEN
     Dates: start: 20080716, end: 20080716
  2. KENALOG [Suspect]
     Indication: EXPOSURE TO TOXIC AGENT
     Dosage: UNKNOWN AT THIS TIME ONE INJECTION IM, ONE SHOT GIVEN
     Dates: start: 20080928, end: 20080928

REACTIONS (9)
  - INJECTION SITE REACTION [None]
  - MENSTRUATION IRREGULAR [None]
  - MUSCLE DISORDER [None]
  - NIGHT SWEATS [None]
  - PARAESTHESIA [None]
  - SKIN ATROPHY [None]
  - SLEEP DISORDER [None]
  - SOFT TISSUE DISORDER [None]
  - WEIGHT INCREASED [None]
